FAERS Safety Report 4822766-9 (Version None)
Quarter: 2005Q4

REPORT INFORMATION
  Report Type: 
  Country: None (occurrence: None)
  Receive Date: 20051104
  Receipt Date: 20051021
  Transmission Date: 20060501
  Serious: Yes (Hospitalization)
  Sender: FDA-Public Use
  Company Number: 430020M05DEU

PATIENT
  Age: 52 Year
  Sex: Female
  Weight: 95 kg

DRUGS (3)
  1. MITOXANTRONE [Suspect]
     Indication: SECONDARY PROGRESSIVE MULTIPLE SCLEROSIS
     Dosage: SEE IMAGE, INTRAVENOUS
     Route: 042
     Dates: start: 20030829, end: 20030829
  2. UBRETID (DISTIGMINE BROMIDE) [Concomitant]
  3. UROXATRAL [Concomitant]

REACTIONS (1)
  - MALIGNANT FIBROUS HISTIOCYTOMA [None]
